FAERS Safety Report 20685539 (Version 1)
Quarter: 2022Q2

REPORT INFORMATION
  Report Type: Spontaneous
  Country: JP (occurrence: JP)
  Receive Date: 20220407
  Receipt Date: 20220407
  Transmission Date: 20220721
  Serious: Yes (Other)
  Sender: FDA-Public Use
  Company Number: JP-PFIZER INC-202200483552

PATIENT
  Age: 57 Year
  Sex: Male

DRUGS (3)
  1. INLYTA [Suspect]
     Active Substance: AXITINIB
     Dosage: 10 MG
     Dates: start: 2019
  2. INLYTA [Suspect]
     Active Substance: AXITINIB
     Dosage: 6 MG
  3. BAVENCIO [Suspect]
     Active Substance: AVELUMAB
     Dosage: UNK
     Dates: start: 2019

REACTIONS (3)
  - Upper gastrointestinal haemorrhage [Unknown]
  - Enterocolitis viral [Recovered/Resolved]
  - Neoplasm progression [Not Recovered/Not Resolved]
